FAERS Safety Report 13555323 (Version 2)
Quarter: 2017Q2

REPORT INFORMATION
  Report Type: Spontaneous
  Country: US (occurrence: US)
  Receive Date: 20170517
  Receipt Date: 20170608
  Transmission Date: 20170830
  Serious: Yes (Other)
  Sender: FDA-Public Use
  Company Number: US-ASTRAZENECA-2017SE50432

PATIENT
  Age: 82 Year
  Sex: Female
  Weight: 72.6 kg

DRUGS (2)
  1. TUDORZA PRESSAIR [Suspect]
     Active Substance: ACLIDINIUM BROMIDE
     Indication: CHRONIC OBSTRUCTIVE PULMONARY DISEASE
     Route: 055
     Dates: start: 2013
  2. TUDORZA PRESSAIR [Suspect]
     Active Substance: ACLIDINIUM BROMIDE
     Indication: LUNG NEOPLASM MALIGNANT
     Route: 055
     Dates: start: 2013

REACTIONS (13)
  - Macular degeneration [Not Recovered/Not Resolved]
  - Drug dose omission [Recovered/Resolved]
  - Device malfunction [Unknown]
  - Blindness [Not Recovered/Not Resolved]
  - Dyspnoea [Recovered/Resolved]
  - Body height decreased [Unknown]
  - Cataract [Not Recovered/Not Resolved]
  - Intentional product use issue [Unknown]
  - Product use in unapproved indication [Unknown]
  - Lung carcinoma cell type unspecified recurrent [Unknown]
  - Colour blindness [Not Recovered/Not Resolved]
  - Glaucoma [Not Recovered/Not Resolved]
  - Circumstance or information capable of leading to medication error [Unknown]

NARRATIVE: CASE EVENT DATE: 2013
